FAERS Safety Report 6129992-X (Version None)
Quarter: 2009Q1

REPORT INFORMATION
  Report Type: 
  Country: None (occurrence: None)
  Receive Date: 20090323
  Receipt Date: 20090323
  Transmission Date: 20090719
  Serious: Yes (Hospitalization)
  Sender: FDA-Public Use
  Company Number: None

PATIENT
  Sex: Female
  Weight: 56.6996 kg

DRUGS (1)
  1. ETODOLAC [Suspect]
     Indication: PROCEDURAL PAIN
     Dosage: 400MG 8HRS PO
     Route: 048
     Dates: start: 20090319, end: 20090320

REACTIONS (7)
  - ABASIA [None]
  - DIZZINESS [None]
  - HEART RATE INCREASED [None]
  - NAUSEA [None]
  - PHARYNGEAL DISORDER [None]
  - RASH [None]
  - VOMITING [None]
